FAERS Safety Report 21347221 (Version 1)
Quarter: 2022Q3

REPORT INFORMATION
  Report Type: Spontaneous
  Country: US (occurrence: US)
  Receive Date: 20220919
  Receipt Date: 20220919
  Transmission Date: 20221026
  Serious: No
  Sender: FDA-Public Use
  Company Number: US-JNJFOC-20220143030

PATIENT
  Age: 16 Year
  Sex: Male

DRUGS (4)
  1. RISPERDAL [Suspect]
     Active Substance: RISPERIDONE
     Indication: Major depression
     Route: 048
  2. RISPERDAL [Suspect]
     Active Substance: RISPERIDONE
     Dosage: 3 MG TABLET (1.5 MG IN THE MORNING AND 3 MG BETWEEN 4 TO 6 PM)
     Route: 048
     Dates: start: 20110809
  3. RISPERDAL [Suspect]
     Active Substance: RISPERIDONE
     Dosage: 3 MG TABLET AT NIGHT
     Route: 048
     Dates: start: 2011
  4. RISPERDAL [Suspect]
     Active Substance: RISPERIDONE
     Dosage: 3 MG TABLET
     Route: 048
     Dates: start: 2012

REACTIONS (4)
  - Somnolence [Unknown]
  - Treatment noncompliance [Unknown]
  - Drug ineffective [Unknown]
  - Off label use [Unknown]

NARRATIVE: CASE EVENT DATE: 20110101
